FAERS Safety Report 6057548-6 (Version None)
Quarter: 2009Q1

REPORT INFORMATION
  Report Type: 
  Country: None (occurrence: None)
  Receive Date: 20090127
  Receipt Date: 20090127
  Transmission Date: 20090719
  Serious: Yes (Hospitalization, Disabling, Other)
  Sender: FDA-Public Use
  Company Number: None

PATIENT
  Age: 77 Year
  Sex: Female
  Weight: 65.318 kg

DRUGS (1)
  1. VYTORIN [Suspect]
     Indication: HYPERLIPIDAEMIA
     Dosage: 1 TABLET - 10/80MG  DAILY PO
     Route: 048
     Dates: start: 20090112, end: 20090118

REACTIONS (6)
  - BACK PAIN [None]
  - CHROMATURIA [None]
  - RENAL FAILURE ACUTE [None]
  - RHABDOMYOLYSIS [None]
  - SENSATION OF HEAVINESS [None]
  - URINE OUTPUT DECREASED [None]
